FAERS Safety Report 23177345 (Version 1)
Quarter: 2023Q4

REPORT INFORMATION
  Report Type: Spontaneous
  Country: US (occurrence: US)
  Receive Date: 20231113
  Receipt Date: 20231113
  Transmission Date: 20240110
  Serious: No
  Sender: FDA-Public Use
  Company Number: US-BAXTER-2023BAX035567

PATIENT

DRUGS (2)
  1. BIVALIRUDIN [Suspect]
     Active Substance: BIVALIRUDIN
     Indication: Anticoagulant therapy
     Dosage: AT AN UNSPECIFIED DOSE AND FREQUENCY, AS IV BOLUS OR IV DRIP AS NEEDED GIVEN VIA LEFT PIV
     Route: 042
  2. SODIUM CHLORIDE [Suspect]
     Active Substance: SODIUM CHLORIDE
     Dosage: AT AN UNSPECIFIED DOSE AND FREQUENCY, AS IV BOLUS OR IV DRIP AS NEEDED VIA LEFT PIV
     Route: 042

REACTIONS (3)
  - Device alarm issue [Unknown]
  - Infusion site swelling [Unknown]
  - Coagulation time abnormal [Unknown]
